FAERS Safety Report 6859622-0 (Version None)
Quarter: 2010Q3

REPORT INFORMATION
  Report Type: 
  Country: None (occurrence: None)
  Receive Date: 20100719
  Receipt Date: 20100719
  Transmission Date: 20110219
  Serious: Yes (Hospitalization)
  Sender: FDA-Public Use
  Company Number: None

PATIENT
  Age: 88 Year
  Sex: Female
  Weight: 54.4316 kg

DRUGS (1)
  1. RECLAST [Suspect]
     Indication: OSTEOPOROSIS
     Dosage: IV INJECTION ONCE
     Dates: start: 20100604

REACTIONS (5)
  - DEHYDRATION [None]
  - NAUSEA [None]
  - NECK PAIN [None]
  - NO THERAPEUTIC RESPONSE [None]
  - PAIN [None]
